FAERS Safety Report 9828504 (Version 1)
Quarter: 2014Q1

REPORT INFORMATION
  Report Type: Spontaneous
  Country: US (occurrence: US)
  Receive Date: 20140117
  Receipt Date: 20140117
  Transmission Date: 20141002
  Serious: Yes (Death)
  Sender: FDA-Public Use
  Company Number: US-PFIZER INC-2014007928

PATIENT
  Age: 24 Year
  Sex: Female

DRUGS (8)
  1. DEXTROMETHORPHAN HBR [Suspect]
     Dosage: UNK
     Route: 048
  2. DEXTROMETHORPHAN HBR [Suspect]
     Route: 051
  3. HEROIN [Suspect]
     Dosage: UNK
     Route: 048
  4. HEROIN [Suspect]
     Route: 051
  5. CODEINE [Suspect]
     Dosage: UNK
     Route: 048
  6. CODEINE [Suspect]
     Route: 051
  7. ACETAMINOPHEN [Suspect]
     Dosage: UNK
     Route: 048
  8. ACETAMINOPHEN [Suspect]
     Route: 051

REACTIONS (1)
  - Drug abuse [Fatal]
